FAERS Safety Report 22315913 (Version 2)
Quarter: 2023Q2

REPORT INFORMATION
  Report Type: Report from Study
  Country: PL (occurrence: PL)
  Receive Date: 20230512
  Receipt Date: 20230608
  Transmission Date: 20230721
  Serious: Yes (Hospitalization)
  Sender: FDA-Public Use
  Company Number: PL-SERVIER-S23004390

PATIENT
  Age: 72 Year
  Sex: Male
  Weight: 58 kg

DRUGS (12)
  1. TIPIRACIL HYDROCHLORIDE\TRIFLURIDINE [Suspect]
     Active Substance: TIPIRACIL HYDROCHLORIDE\TRIFLURIDINE
     Indication: Adenocarcinoma of colon
     Dosage: 60 MG (35 MG/M2), BID, ON DAYS 1-5 AND 8-12 OF EACH 28-DAY CYCLE
     Route: 048
     Dates: start: 20220103, end: 20220408
  2. TIPIRACIL HYDROCHLORIDE\TRIFLURIDINE [Suspect]
     Active Substance: TIPIRACIL HYDROCHLORIDE\TRIFLURIDINE
     Dosage: 60  MG (35 MG/M2), BID, ON DAYS 1-5 AND 8-12 OF EACH 28-DAY CYCLE
     Route: 048
     Dates: start: 20220505, end: 20221101
  3. TIPIRACIL HYDROCHLORIDE\TRIFLURIDINE [Suspect]
     Active Substance: TIPIRACIL HYDROCHLORIDE\TRIFLURIDINE
     Dosage: 60 MG (35 MG/M2), BID, ON DAYS 1-5 AND 8-12 OF EACH 28-DAY CYCLE
     Route: 048
     Dates: start: 20221125, end: 20221206
  4. TIPIRACIL HYDROCHLORIDE\TRIFLURIDINE [Suspect]
     Active Substance: TIPIRACIL HYDROCHLORIDE\TRIFLURIDINE
     Dosage: 60 MG (35 MG/M2), BID, ON DAYS 1-5 AND 8-12 OF EACH 28-DAY CYCLE
     Route: 048
     Dates: start: 20221228, end: 20230404
  5. TIPIRACIL HYDROCHLORIDE\TRIFLURIDINE [Suspect]
     Active Substance: TIPIRACIL HYDROCHLORIDE\TRIFLURIDINE
     Dosage: 60 MG (35 MG/M2), BID, ON DAYS 1-5 AND 8-12 OF EACH 28-DAY CYCLE
     Route: 048
     Dates: start: 20230428, end: 20230526
  6. BEVACIZUMAB [Suspect]
     Active Substance: BEVACIZUMAB
     Indication: Adenocarcinoma of colon
     Dosage: 290 MG (5MG/KG), ON DAYS 1 AND 15 OF EACH 28-DAY CYCLE
     Route: 042
     Dates: start: 20220103, end: 20220412
  7. BEVACIZUMAB [Suspect]
     Active Substance: BEVACIZUMAB
     Dosage: 285 MG (5MG/KG), ON DAYS 1 AND 15 OF EACH 28-DAY CYCLE
     Route: 042
     Dates: start: 20220505, end: 20221104
  8. BEVACIZUMAB [Suspect]
     Active Substance: BEVACIZUMAB
     Dosage: 290 MG (5MG/KG), ON DAYS 1 AND 15 OF EACH 28-DAY CYCLE
     Route: 042
     Dates: start: 20221125, end: 20221209
  9. BEVACIZUMAB [Suspect]
     Active Substance: BEVACIZUMAB
     Dosage: 290 MG (5MG/KG), ON DAYS 1 AND 15 OF EACH 28-DAY CYCLE
     Route: 042
     Dates: start: 20221228, end: 20230407
  10. BEVACIZUMAB [Suspect]
     Active Substance: BEVACIZUMAB
     Dosage: 290 MG (5MG/KG), ON DAYS 1 AND 15 OF EACH 28-DAY CYCLE
     Route: 042
     Dates: start: 20230428, end: 20230428
  11. BEVACIZUMAB [Suspect]
     Active Substance: BEVACIZUMAB
     Dosage: 270 MG (5MG/KG), ON DAYS 1 AND 15 OF EACH 28-DAY CYCLE
     Route: 042
     Dates: start: 20230512, end: 20230526
  12. OXYDOLOR [Concomitant]
     Indication: Analgesic therapy
     Dosage: 20 MG, BID
     Route: 048
     Dates: start: 20211220

REACTIONS (1)
  - Anaemia [Recovering/Resolving]

NARRATIVE: CASE EVENT DATE: 20230124
